FAERS Safety Report 4295768-1 (Version None)
Quarter: 2004Q1

REPORT INFORMATION
  Report Type: 
  Country: None (occurrence: None)
  Receive Date: 20040216
  Receipt Date: 20031031
  Transmission Date: 20041129
  Serious: No
  Sender: FDA-Public Use
  Company Number: US-GLAXOSMITHKLINE-A0432402A

PATIENT
  Age: 33 Year
  Sex: Female

DRUGS (5)
  1. LAMICTAL [Suspect]
     Indication: BIPOLAR DISORDER
     Dosage: 75MG PER DAY
     Route: 048
     Dates: start: 20030930, end: 20031015
  2. TOPAMAX [Concomitant]
  3. KLONOPIN [Concomitant]
  4. WELLBUTRIN SR [Concomitant]
  5. SYNTHROID [Concomitant]

REACTIONS (1)
  - RASH PRURITIC [None]
